FAERS Safety Report 9462609 (Version 3)
Quarter: 2013Q4

REPORT INFORMATION
  Report Type: Spontaneous
  Country: US (occurrence: US)
  Receive Date: 20130816
  Receipt Date: 20131001
  Transmission Date: 20140711
  Serious: Yes (Hospitalization, Other)
  Sender: FDA-Public Use
  Company Number: US-AMGEN-USASP2013057264

PATIENT
  Age: 36 Year
  Sex: Female
  Weight: 61.68 kg

DRUGS (46)
  1. PROCRIT [Suspect]
     Indication: ANAEMIA
     Dosage: 40000 UNIT, UNK
     Route: 058
     Dates: start: 20130705
  2. NEUPOGEN [Concomitant]
     Dosage: UNK UNK, QD
  3. TAXOTERE [Concomitant]
     Dosage: UNK
     Dates: end: 20130805
  4. ADVAIR [Concomitant]
     Dosage: 500 MCG-50 MCG/DOSE
  5. AMITRIPTYLIN [Concomitant]
     Dosage: 10 MG, UNK
  6. BABY ASPIRIN [Concomitant]
     Dosage: UNK
  7. IRON [Concomitant]
     Dosage: UNK
  8. FUROSEMIDE [Concomitant]
     Dosage: 20 MG, UNK
  9. HALOPERIDOL [Concomitant]
     Dosage: 0.5 MG, UNK
  10. VICODIN [Concomitant]
     Dosage: UNK AS NEEDED
  11. HYDROXYZINE [Concomitant]
     Dosage: UNK AT BEDTIME
  12. HYDROXYZINE [Concomitant]
     Dosage: 50 MG, UNK
  13. IBUPROFEN [Concomitant]
     Dosage: 800 MG, UNK
  14. KLONOPIN [Concomitant]
     Dosage: 1 MG, AT BEDTIME
  15. KLONOPIN [Concomitant]
     Dosage: UNK
  16. LEXAPRO [Concomitant]
     Dosage: UNK UNK, QD
  17. LEXAPRO [Concomitant]
     Dosage: 10 MG, UNK
  18. ATIVAN [Concomitant]
     Dosage: 1 MG, UNK
  19. LOTEMAX [Concomitant]
     Dosage: 0.5 % , THREE TIMES A DAY
  20. MAXAIR                             /00587603/ [Concomitant]
     Dosage: 200 MUG/ INHALATION, UNK
  21. MIDODRINE [Concomitant]
     Dosage: 5 MG, QD
  22. MULTIVITAMINS, PLAIN [Concomitant]
     Dosage: UNK UNK, QD
     Route: 048
  23. PREDNISONE [Concomitant]
     Dosage: 10 MG, AS NEEDED
  24. PREDNISONE [Concomitant]
     Dosage: 20 MG, AS NEEDED
  25. PREVACID [Concomitant]
     Dosage: 30 MG, UNK
  26. COMPAZINE                          /00013302/ [Concomitant]
     Dosage: UNK AS NEEDED
  27. ZANTAC [Concomitant]
     Dosage: 50 MG, BID
  28. SINGULAIR [Concomitant]
     Dosage: 10 MG, QD
  29. VIT B COMPLEX [Concomitant]
     Dosage: UNK
  30. VIT D3 [Concomitant]
     Dosage: 1000 UNIT, UNK
  31. XOPENEX [Concomitant]
     Dosage: 0.31 MG/3 ML
  32. ZYRTEC [Concomitant]
     Dosage: UNK UNK, DAILY
  33. ASPIRIN [Concomitant]
     Dosage: 81 MG, UNK
     Route: 048
  34. FERROUS SULFATE [Concomitant]
     Dosage: 325 MG, UNK
  35. EMLA                               /00675501/ [Concomitant]
     Dosage: 2.5 %, UNK
     Route: 061
  36. TRIAMCINOLONE ACETONIDE [Concomitant]
     Dosage: 01. %, UNK
  37. ARIMIDEX [Concomitant]
     Dosage: 1 MG, UNK
  38. CIPRO                              /00697201/ [Concomitant]
     Dosage: 500 MG, UNK
  39. DOXYCYCLINE HYCLATE [Concomitant]
     Dosage: 100 MG, UNK
  40. FIRST BXN [Concomitant]
     Dosage: 1.6 G-1.6 G-0.2 G/237 ML
  41. MAXAIR                             /00587603/ [Concomitant]
     Dosage: 200 MUG/ INHALATION BREATH ACTIVATED
  42. NEURONTIN [Concomitant]
     Dosage: 300 MG, UNK
  43. PATADAY [Concomitant]
     Dosage: 0.2 %, UNK
  44. VERAMYST [Concomitant]
     Dosage: 27.5 MCG/ACTUATION
  45. TAMOXIFEN [Concomitant]
     Dosage: 20 MG, UNK
  46. LEVOFLOXACIN [Concomitant]
     Dosage: UNK

REACTIONS (71)
  - Mediastinum neoplasm [Unknown]
  - Breast cancer [Unknown]
  - Pleural effusion [Unknown]
  - Breast neoplasm [Unknown]
  - Bone marrow failure [Unknown]
  - Eye irritation [Recovering/Resolving]
  - Lacrimation increased [Recovering/Resolving]
  - Lymphoedema [Unknown]
  - Ageusia [Unknown]
  - Decreased appetite [Unknown]
  - Dyspepsia [Unknown]
  - Neuropathy peripheral [Unknown]
  - Pain in extremity [Unknown]
  - Heart rate increased [Unknown]
  - Body temperature increased [Unknown]
  - Night sweats [Unknown]
  - Tinnitus [Unknown]
  - Oropharyngeal pain [Unknown]
  - Epistaxis [Unknown]
  - Palpitations [Unknown]
  - Dyspnoea [Unknown]
  - Abdominal pain [Unknown]
  - Musculoskeletal stiffness [Unknown]
  - Joint swelling [Unknown]
  - Pleuritic pain [Unknown]
  - Chest pain [Unknown]
  - Vision blurred [Unknown]
  - Rectal haemorrhage [Unknown]
  - Pollakiuria [Unknown]
  - Nocturia [Unknown]
  - Contusion [Unknown]
  - Balance disorder [Unknown]
  - Muscular weakness [Unknown]
  - Paraesthesia [Unknown]
  - Amnesia [Unknown]
  - Mental impairment [Unknown]
  - Furuncle [Unknown]
  - Anxiety [Unknown]
  - Restlessness [Unknown]
  - Seroma [Unknown]
  - Nail disorder [Unknown]
  - Weight increased [Unknown]
  - Skin lesion [Unknown]
  - Fatigue [Unknown]
  - Dysphonia [Unknown]
  - Tachycardia [Recovering/Resolving]
  - Orthopnoea [Unknown]
  - Constipation [Unknown]
  - Mass [Not Recovered/Not Resolved]
  - Embolism [Unknown]
  - Neutropenia [Unknown]
  - Anaemia [Unknown]
  - Dyspepsia [Unknown]
  - Diarrhoea [Unknown]
  - Rhinorrhoea [Unknown]
  - Dizziness [Unknown]
  - Muscle spasms [Unknown]
  - Myalgia [Unknown]
  - Insomnia [Unknown]
  - Arthralgia [Unknown]
  - Cough [Unknown]
  - Nausea [Unknown]
  - Thrombosis [Unknown]
  - Chills [Unknown]
  - Rash [Unknown]
  - Oedema [Unknown]
  - Depression [Unknown]
  - Headache [Unknown]
  - Pyrexia [Unknown]
  - Weight decreased [Unknown]
  - Local swelling [Unknown]
